FAERS Safety Report 7686864-7 (Version None)
Quarter: 2011Q3

REPORT INFORMATION
  Report Type: 
  Country: None (occurrence: None)
  Receive Date: 20110816
  Receipt Date: 20110815
  Transmission Date: 20111222
  Serious: Yes (Other)
  Sender: FDA-Public Use
  Company Number: US-PFIZER INC-2011187162

PATIENT
  Sex: Female
  Weight: 63.492 kg

DRUGS (11)
  1. AMLODIPINE [Concomitant]
     Indication: HYPERTENSION
     Dosage: 5 MG, DAILY
  2. NEURONTIN [Suspect]
     Indication: FIBROMYALGIA
     Dosage: UNK
  3. NORCO [Concomitant]
     Indication: PAIN
     Dosage: (HYDROCODONE BITARTRATE, 10 MG)/(PARACETAMOL, 325 MG))
  4. ATIVAN [Concomitant]
     Indication: ANXIETY
     Dosage: 1 MG, 3X/DAY
  5. PRIMIDONE [Concomitant]
     Indication: TREMOR
     Dosage: 250 MG, 3X/DAY
  6. NEURONTIN [Suspect]
     Indication: NEUROPATHY PERIPHERAL
     Dosage: 100 MG, DAILY
     Dates: start: 20100401
  7. METFORMIN [Concomitant]
     Indication: DIABETES MELLITUS
     Dosage: 500 MG, DAILY
  8. MECLIZINE [Concomitant]
     Indication: DIZZINESS
     Dosage: 25 MG, 3X/DAY
  9. CELEBREX [Concomitant]
     Indication: ARTHRITIS
     Dosage: UNK
     Dates: start: 19900101
  10. AMITRIPTYLINE [Concomitant]
     Indication: SLEEP DISORDER
     Dosage: 75 MG, DAILY
  11. AMITRIPTYLINE [Concomitant]
     Indication: PAIN

REACTIONS (4)
  - HEPATITIS C [None]
  - NEURALGIA [None]
  - DRUG INEFFECTIVE [None]
  - INSOMNIA [None]
